FAERS Safety Report 7404485-8 (Version None)
Quarter: 2011Q2

REPORT INFORMATION
  Report Type: 
  Country: None (occurrence: None)
  Receive Date: 20110408
  Receipt Date: 20110407
  Transmission Date: 20111010
  Serious: Yes (Other)
  Sender: FDA-Public Use
  Company Number: US-PFIZER INC-2011077823

PATIENT
  Sex: Male

DRUGS (1)
  1. CHANTIX [Suspect]
     Dosage: 1 MG, 2X/DAY

REACTIONS (5)
  - THROAT TIGHTNESS [None]
  - DIZZINESS [None]
  - ABDOMINAL DISTENSION [None]
  - DRY THROAT [None]
  - DYSPNOEA [None]
